FAERS Safety Report 12594228 (Version 1)
Quarter: 2016Q3

REPORT INFORMATION
  Report Type: Spontaneous
  Country: US (occurrence: US)
  Receive Date: 20160726
  Receipt Date: 20160726
  Transmission Date: 20161109
  Serious: Yes (Hospitalization)
  Sender: FDA-Public Use
  Company Number: US-UNITED THERAPEUTICS-UNT-2015-014173

PATIENT
  Age: 37 Year
  Sex: Female
  Weight: 56.69 kg

DRUGS (5)
  1. ADEMPAS [Suspect]
     Active Substance: RIOCIGUAT
     Indication: PRODUCT USED FOR UNKNOWN INDICATION
     Dosage: 1 MG, UNK
     Route: 065
     Dates: start: 20151103
  2. TYVASO [Suspect]
     Active Substance: TREPROSTINIL
     Dosage: 18-54 ?G, QID
  3. TYVASO [Suspect]
     Active Substance: TREPROSTINIL
     Indication: PULMONARY HYPERTENSION
     Dosage: 18-54 ?G, QID
     Dates: start: 20150413
  4. VELETRI [Suspect]
     Active Substance: EPOPROSTENOL
     Indication: PRODUCT USED FOR UNKNOWN INDICATION
  5. ELIQUIS [Concomitant]
     Active Substance: APIXABAN
     Indication: PRODUCT USED FOR UNKNOWN INDICATION
     Route: 065

REACTIONS (9)
  - Asthenia [Unknown]
  - Vomiting [Unknown]
  - Feeding disorder [Unknown]
  - Dizziness [Unknown]
  - Flushing [Unknown]
  - Nausea [Unknown]
  - Pulmonary arterial hypertension [Unknown]
  - Dyspepsia [Unknown]
  - Headache [Recovered/Resolved]

NARRATIVE: CASE EVENT DATE: 201511
